FAERS Safety Report 9475808 (Version 1)
Quarter: 2013Q3

REPORT INFORMATION
  Report Type: Spontaneous
  Country: US (occurrence: US)
  Receive Date: 20130826
  Receipt Date: 20130826
  Transmission Date: 20140515
  Serious: Yes (Other)
  Sender: FDA-Public Use
  Company Number: US-PFIZER INC-2013244403

PATIENT
  Sex: Male

DRUGS (1)
  1. LYRICA [Suspect]
     Dosage: UNK

REACTIONS (5)
  - Suicidal ideation [Unknown]
  - Muscle spasms [Unknown]
  - Visual impairment [Unknown]
  - Arthropathy [Unknown]
  - Blood pressure increased [Unknown]
